FAERS Safety Report 7680086-1 (Version None)
Quarter: 2011Q3

REPORT INFORMATION
  Report Type: 
  Country: None (occurrence: None)
  Receive Date: 20110811
  Receipt Date: 20110811
  Transmission Date: 20111222
  Serious: No
  Sender: FDA-Public Use
  Company Number: None

PATIENT
  Sex: Female
  Weight: 115.6672 kg

DRUGS (2)
  1. PROZAC [Suspect]
     Indication: PANIC ATTACK
     Dosage: 40MG ONE QD PO
     Route: 048
     Dates: start: 20110601, end: 20110701
  2. PROZAC [Suspect]
     Indication: ANXIETY
     Dosage: 40MG ONE QD PO
     Route: 048
     Dates: start: 20110601, end: 20110701

REACTIONS (2)
  - MIDDLE INSOMNIA [None]
  - DRUG INEFFECTIVE [None]
